FAERS Safety Report 6731111-3 (Version None)
Quarter: 2010Q2

REPORT INFORMATION
  Report Type: 
  Country: None (occurrence: None)
  Receive Date: 20100518
  Receipt Date: 20100212
  Transmission Date: 20101027
  Serious: Yes (Disabling, Other)
  Sender: FDA-Public Use
  Company Number: A0814384A

PATIENT
  Age: 61 Year
  Sex: Female

DRUGS (4)
  1. COREG CR [Suspect]
     Route: 048
     Dates: start: 20090902
  2. LIPITOR [Concomitant]
  3. CALCIUM [Concomitant]
  4. METFORMIN HYDROCHLORIDE [Concomitant]

REACTIONS (2)
  - DRUG INEFFECTIVE [None]
  - PRODUCT QUALITY ISSUE [None]
